FAERS Safety Report 24174774 (Version 1)
Quarter: 2024Q3

REPORT INFORMATION
  Report Type: Spontaneous
  Country: CN (occurrence: CN)
  Receive Date: 20240805
  Receipt Date: 20240805
  Transmission Date: 20241016
  Serious: Yes (Other)
  Sender: ROCHE
  Company Number: CN-ROCHE-RCA5205354

PATIENT
  Age: 37 Year
  Sex: Female
  Weight: 55 kg

DRUGS (15)
  1. MYCOPHENOLATE MOFETIL [Suspect]
     Active Substance: MYCOPHENOLATE MOFETIL
     Indication: Myasthenia gravis
     Route: 065
     Dates: start: 202209
  2. MYCOPHENOLATE MOFETIL [Suspect]
     Active Substance: MYCOPHENOLATE MOFETIL
     Route: 048
     Dates: start: 202209
  3. PREDNISONE [Concomitant]
     Active Substance: PREDNISONE
     Route: 042
  4. PREDNISONE [Concomitant]
     Active Substance: PREDNISONE
     Dates: start: 202101, end: 2021
  5. PREDNISONE [Concomitant]
     Active Substance: PREDNISONE
     Route: 042
     Dates: start: 202202, end: 202207
  6. PREDNISONE [Concomitant]
     Active Substance: PREDNISONE
     Route: 042
     Dates: start: 201808, end: 2019
  7. PREDNISONE [Concomitant]
     Active Substance: PREDNISONE
     Route: 042
     Dates: start: 202109, end: 2021
  8. RITUXIMAB [Concomitant]
     Active Substance: RITUXIMAB
  9. RITUXIMAB [Concomitant]
     Active Substance: RITUXIMAB
  10. TACROLIMUS [Concomitant]
     Active Substance: TACROLIMUS
  11. TELITACICEPT [Concomitant]
     Active Substance: TELITACICEPT
  12. PYRIDOSTIGMINE [Concomitant]
     Active Substance: PYRIDOSTIGMINE
     Dosage: 180 MG/DAY
     Route: 042
     Dates: start: 202306
  13. PYRIDOSTIGMINE [Concomitant]
     Active Substance: PYRIDOSTIGMINE
     Route: 048
     Dates: start: 202306
  14. CYCLOSPORINE [Concomitant]
     Active Substance: CYCLOSPORINE
  15. AZATHIOPRINE [Concomitant]
     Active Substance: AZATHIOPRINE
     Route: 048

REACTIONS (3)
  - Gastrooesophageal reflux disease [Recovered/Resolved]
  - Pneumonia [Recovering/Resolving]
  - Myasthenia gravis [Recovering/Resolving]
